FAERS Safety Report 8290423-5 (Version None)
Quarter: 2012Q2

REPORT INFORMATION
  Report Type: 
  Country: None (occurrence: None)
  Receive Date: 20120413
  Receipt Date: 20120413
  Transmission Date: 20120825
  Serious: Yes (Hospitalization)
  Sender: FDA-Public Use
  Company Number: None

PATIENT
  Sex: Male
  Weight: 96 kg

DRUGS (2)
  1. ERLOTINIB HYDROCHLORIDE [Suspect]
     Indication: NON-SMALL CELL LUNG CANCER
     Dosage: 150 MG QD PO
     Route: 048
     Dates: start: 20120125, end: 20120408
  2. CETUXIMAB BRISTOL-MYERS SQUIBB [Suspect]
     Indication: NON-SMALL CELL LUNG CANCER
     Dosage: 250MG/M2 (REDUCED Q WEEK IV ; 200MG/M2 3-7-12
     Route: 042
     Dates: start: 20120125, end: 20120404

REACTIONS (3)
  - PNEUMONIA [None]
  - HAEMOPTYSIS [None]
  - PYREXIA [None]
